FAERS Safety Report 16861956 (Version 2)
Quarter: 2020Q2

REPORT INFORMATION
  Report Type: Spontaneous
  Country: US (occurrence: US)
  Receive Date: 20190927
  Receipt Date: 20200526
  Transmission Date: 20200713
  Serious: Yes (Death, Hospitalization)
  Sender: FDA-Public Use
  Company Number: US-ASTRAZENECA-2019SF36605

PATIENT
  Age: 25224 Day
  Sex: Female
  Weight: 181.4 kg

DRUGS (22)
  1. JANUVIA [Concomitant]
     Active Substance: SITAGLIPTIN PHOSPHATE
     Dates: start: 20180228
  2. RAMIPRIL. [Concomitant]
     Active Substance: RAMIPRIL
     Dates: start: 20161005
  3. PANTOPRAZOLE [Concomitant]
     Active Substance: PANTOPRAZOLE
  4. PRIMIDONE. [Concomitant]
     Active Substance: PRIMIDONE
     Dates: start: 20160929
  5. TRAMADOL. [Concomitant]
     Active Substance: TRAMADOL
     Dates: start: 20160327
  6. ELIQUIS [Concomitant]
     Active Substance: APIXABAN
     Dates: start: 20180507
  7. IPRATROPIUM [Concomitant]
     Active Substance: IPRATROPIUM
  8. LYRICA [Concomitant]
     Active Substance: PREGABALIN
     Dates: start: 20171101
  9. OXYBUTYNIN. [Concomitant]
     Active Substance: OXYBUTYNIN CHLORIDE
     Dates: start: 20170725
  10. FARXIGA [Suspect]
     Active Substance: DAPAGLIFLOZIN PROPANEDIOL
     Indication: BLOOD PRESSURE DECREASED
     Dosage: 5.0MG UNKNOWN
     Route: 048
     Dates: start: 201808
  11. LEVOTHYROXINE. [Concomitant]
     Active Substance: LEVOTHYROXINE
     Dates: start: 20180215
  12. VENLAFAXINE [Concomitant]
     Active Substance: VENLAFAXINE HYDROCHLORIDE
     Dates: start: 20160413
  13. ASPIRIN. [Concomitant]
     Active Substance: ASPIRIN
  14. ATORVASTATIN [Concomitant]
     Active Substance: ATORVASTATIN
     Dates: start: 20180309
  15. OMEPRAZOLE. [Concomitant]
     Active Substance: OMEPRAZOLE
     Dates: start: 20170923
  16. METOPROLOL TARTRATE. [Concomitant]
     Active Substance: METOPROLOL TARTRATE
     Route: 065
  17. ALENDRONATE [Concomitant]
     Active Substance: ALENDRONATE SODIUM
     Dates: start: 20180727
  18. HYDROXYZINE [Concomitant]
     Active Substance: HYDROXYZINE HYDROCHLORIDE
     Dates: start: 20180602
  19. TRAZODONE [Concomitant]
     Active Substance: TRAZODONE HYDROCHLORIDE
     Dates: start: 20160327
  20. FARXIGA [Suspect]
     Active Substance: DAPAGLIFLOZIN PROPANEDIOL
     Indication: TYPE 2 DIABETES MELLITUS
     Dosage: 5.0MG UNKNOWN
     Route: 048
     Dates: start: 201808
  21. FARXIGA [Suspect]
     Active Substance: DAPAGLIFLOZIN PROPANEDIOL
     Indication: WEIGHT DECREASED
     Dosage: 5.0MG UNKNOWN
     Route: 048
     Dates: start: 201808
  22. VENTOLIN [Concomitant]
     Active Substance: ALBUTEROL SULFATE
     Dates: start: 20160413

REACTIONS (5)
  - Necrotising soft tissue infection [Unknown]
  - Obesity [Fatal]
  - Diabetes mellitus [Fatal]
  - Staphylococcal infection [Fatal]
  - Arteriosclerosis [Fatal]

NARRATIVE: CASE EVENT DATE: 20180825
